FAERS Safety Report 9275613 (Version 1)
Quarter: 2013Q2

REPORT INFORMATION
  Report Type: Spontaneous
  Country: NL (occurrence: None)
  Receive Date: 20130430
  Receipt Date: 20130430
  Transmission Date: 20140414
  Serious: Yes (Hospitalization)
  Sender: FDA-Public Use
  Company Number: AUR-APL-2013-03419

PATIENT
  Age: 41 Year
  Sex: Male
  Weight: 109 kg

DRUGS (9)
  1. PANTOPRAZOLE [Suspect]
     Indication: PRODUCT USED FOR UNKNOWN INDICATION
     Route: 048
  2. AMLODIPINE BESILATE [Suspect]
     Indication: PRODUCT USED FOR UNKNOWN INDICATION
     Route: 048
     Dates: start: 20111124, end: 20111223
  3. METOPROLOL SUCCINATE [Suspect]
     Indication: PRODUCT USED FOR UNKNOWN INDICATION
     Route: 048
  4. BUSCOPAN [Suspect]
     Indication: PRODUCT USED FOR UNKNOWN INDICATION
     Route: 048
     Dates: start: 20091209, end: 20091221
  5. SEROQUEL (QUETIAPINE FUMARATE) [Suspect]
     Indication: PRODUCT USED FOR UNKNOWN INDICATION
     Route: 048
     Dates: start: 20111124, end: 20111221
  6. NORTRILEN [Suspect]
     Indication: PRODUCT USED FOR UNKNOWN INDICATION
     Dosage: TWO TABLETS IN THE MORNING.
     Route: 048
  7. DOMPERIDONE [Suspect]
     Indication: PRODUCT USED FOR UNKNOWN INDICATION
     Dosage: (10 MG, 3 IN 1 D)
     Route: 048
     Dates: start: 20091209, end: 20111221
  8. OXAZEPAM (OXAZEPAM) [Concomitant]
  9. PANADOL (PARACETAMOL) [Concomitant]

REACTIONS (7)
  - Abdominal discomfort [None]
  - Constipation [None]
  - Bowel movement irregularity [None]
  - Haemorrhoids [None]
  - Haematochezia [None]
  - Overweight [None]
  - Haemorrhage [None]
